FAERS Safety Report 18311309 (Version 1)
Quarter: 2020Q3

REPORT INFORMATION
  Report Type: Spontaneous
  Country: US (occurrence: US)
  Receive Date: 20200916
  Receipt Date: 20200916
  Transmission Date: 20201103
  Serious: Yes (Other)
  Sender: FDA-Public Use
  Company Number: None

PATIENT
  Age: 3 Decade
  Sex: Male

DRUGS (4)
  1. ARBIDOL [Suspect]
     Active Substance: UMIFENOVIR
     Indication: COVID-19
     Dosage: FREQUENCY: TDS?
     Route: 048
     Dates: start: 2020
  2. LOPINAVIR [Suspect]
     Active Substance: LOPINAVIR
     Indication: COVID-19
     Dosage: ?          OTHER DOSE:200/50 MG;?
     Route: 048
     Dates: start: 2020
  3. INTERFERON ALFA NOS [Suspect]
     Active Substance: INTERFERON ALFA-2A OR INTERFERON ALFA-2B
     Indication: COVID-19
     Dosage: FREQUENCY: BD/ROUTE: NUBLIZED
     Dates: start: 2020
  4. RITONAVIR. [Suspect]
     Active Substance: RITONAVIR
     Indication: COVID-19
     Dosage: DOSE: 200/50 MG
     Route: 048
     Dates: start: 2020

REACTIONS (1)
  - Off label use [None]
